FAERS Safety Report 7804074-7 (Version None)
Quarter: 2011Q4

REPORT INFORMATION
  Report Type: 
  Country: None (occurrence: None)
  Receive Date: 20111010
  Receipt Date: 20110929
  Transmission Date: 20120403
  Serious: Yes (Hospitalization)
  Sender: FDA-Public Use
  Company Number: JP-ASTRAZENECA-2011SE59762

PATIENT
  Age: 70 Year
  Sex: Male
  Weight: 64 kg

DRUGS (7)
  1. WARFARIN SODIUM [Suspect]
     Indication: CEREBRAL INFARCTION
     Route: 048
     Dates: start: 20070522, end: 20100622
  2. ATELEC [Concomitant]
     Indication: HYPERTENSION
     Route: 048
     Dates: start: 20070522
  3. CANDESARTAN CILEXETIL AND HYDROCHLOROTHIAZIDE [Suspect]
     Dosage: 4MG/6.25MG DAILY
     Route: 048
     Dates: start: 20101102
  4. PERINDOPRIL ERBUMINE [Concomitant]
     Indication: HYPERTENSION
     Route: 048
     Dates: start: 20070522
  5. CANDESARTAN CILEXETIL AND HYDROCHLOROTHIAZIDE [Suspect]
     Indication: HYPERTENSION
     Dosage: 8MG/6.25MG DAILY
     Route: 048
     Dates: start: 20100105, end: 20101101
  6. BASEN OD [Concomitant]
     Route: 048
     Dates: start: 20070703
  7. SUNRYTHM [Concomitant]
     Indication: ATRIAL FIBRILLATION
     Route: 048
     Dates: start: 20091110

REACTIONS (1)
  - GASTRIC ULCER [None]
